FAERS Safety Report 5714748-X (Version None)
Quarter: 2008Q2

REPORT INFORMATION
  Report Type: 
  Country: None (occurrence: None)
  Receive Date: 20080423
  Receipt Date: 20080421
  Transmission Date: 20081010
  Serious: Yes (Hospitalization)
  Sender: FDA-Public Use
  Company Number: CA-BRISTOL-MYERS SQUIBB COMPANY-14159461

PATIENT
  Age: 41 Year
  Sex: Male

DRUGS (4)
  1. CISPLATIN [Suspect]
     Indication: SQUAMOUS CELL CARCINOMA
     Dosage: INJECTION
     Route: 042
     Dates: start: 20080318
  2. BLINDED: LAPATINIB [Suspect]
     Indication: SQUAMOUS CELL CARCINOMA
     Route: 048
     Dates: start: 20080310
  3. BLINDED: PLACEBO [Suspect]
     Indication: SQUAMOUS CELL CARCINOMA
     Route: 048
     Dates: start: 20080310
  4. RADIOTHERAPY [Suspect]
     Indication: SQUAMOUS CELL CARCINOMA
     Dosage: 1 DOSAGE FORM = 6 GRAY
     Route: 061
     Dates: start: 20080318

REACTIONS (1)
  - MUCOSAL INFLAMMATION [None]
